FAERS Safety Report 7883625-0 (Version None)
Quarter: 2011Q4

REPORT INFORMATION
  Report Type: 
  Country: None (occurrence: None)
  Receive Date: 20111102
  Receipt Date: 20111026
  Transmission Date: 20120403
  Serious: Yes (Hospitalization, Other)
  Sender: FDA-Public Use
  Company Number: FR-BRISTOL-MYERS SQUIBB COMPANY-15872591

PATIENT
  Age: 73 Year
  Sex: Male
  Weight: 68 kg

DRUGS (8)
  1. CLORAZEPATE DIPOTASSIUM [Concomitant]
     Dates: start: 20100915, end: 20110616
  2. ESCITALOPRAM OXALATE [Concomitant]
     Indication: DEPRESSION
     Dates: start: 20010413, end: 20110810
  3. CLONAZEPAM [Concomitant]
     Indication: ANXIETY
     Dates: end: 20110727
  4. LITHIUM CITRATE [Concomitant]
     Indication: BIPOLAR DISORDER
     Dates: end: 20110727
  5. ABILIFY [Suspect]
     Indication: BIPOLAR DISORDER
     Dosage: 1 DF= 15 TO 20 MG
     Route: 048
     Dates: start: 20110601, end: 20110620
  6. PREVISCAN [Suspect]
     Indication: PULMONARY EMBOLISM
     Route: 048
     Dates: start: 20110203, end: 20110620
  7. MYSOLINE [Concomitant]
     Indication: TREMOR
     Dates: start: 20101201, end: 20110810
  8. LEPTICUR [Concomitant]
     Indication: EXTRAPYRAMIDAL DISORDER
     Dates: end: 20110727

REACTIONS (2)
  - CYTOLYTIC HEPATITIS [None]
  - CHOLESTASIS [None]
